FAERS Safety Report 4750495-9 (Version None)
Quarter: 2005Q3

REPORT INFORMATION
  Report Type: 
  Country: None (occurrence: None)
  Receive Date: 20050823
  Receipt Date: 20050816
  Transmission Date: 20060218
  Serious: Yes (Other)
  Sender: FDA-Public Use
  Company Number: DE-GLAXOSMITHKLINE-D0047295A

PATIENT
  Age: 73 Year
  Sex: Female

DRUGS (6)
  1. SEROXAT [Suspect]
     Indication: MAJOR DEPRESSION
     Route: 048
     Dates: start: 19940510, end: 19940829
  2. TAXILAN [Suspect]
     Route: 048
     Dates: start: 19940524, end: 19940905
  3. LEPONEX [Suspect]
     Route: 048
     Dates: start: 19940901, end: 19940907
  4. LORAZEPAM [Concomitant]
     Dosage: 1.5MG PER DAY
     Route: 048
  5. STILNOX [Concomitant]
     Dosage: 10MG UNKNOWN
     Route: 048
  6. ASPIRIN [Concomitant]
     Dosage: 50MG PER DAY
     Route: 048

REACTIONS (5)
  - DELIRIUM [None]
  - DISORIENTATION [None]
  - DRUG INTERACTION [None]
  - DYSARTHRIA [None]
  - MEMORY IMPAIRMENT [None]
